FAERS Safety Report 22117298 (Version 3)
Quarter: 2023Q1

REPORT INFORMATION
  Report Type: Report from Study
  Country: SE (occurrence: SE)
  Receive Date: 20230320
  Receipt Date: 20230330
  Transmission Date: 20230417
  Serious: Yes (Other)
  Sender: FDA-Public Use
  Company Number: SE-ABBVIE-4343643

PATIENT
  Sex: Female

DRUGS (3)
  1. CARBIDOPA\LEVODOPA [Suspect]
     Active Substance: CARBIDOPA\LEVODOPA
     Indication: Parkinson^s disease
     Dosage: CONTINUOUS DOSE INCREASED FROM 1.1 ML, TO 1.3 ML, DISCONTINUED IN MAR 2023
     Route: 050
     Dates: start: 20230314
  2. CARBIDOPA\LEVODOPA [Suspect]
     Active Substance: CARBIDOPA\LEVODOPA
     Dosage: THERAPY DURATION: REMAINS AT 16 HOURS
     Route: 050
     Dates: start: 20221115
  3. CARBIDOPA\LEVODOPA [Suspect]
     Active Substance: CARBIDOPA\LEVODOPA
     Dosage: CURRENT DOSAGE: MORNING DOSE 5.5 ML, EXTRA DOSE 0.6 ML.
     Route: 050
     Dates: start: 20230314

REACTIONS (7)
  - Pleural effusion [Recovered/Resolved]
  - Diaphragmalgia [Recovered/Resolved]
  - Infection [Recovered/Resolved]
  - Mobility decreased [Unknown]
  - Dyspnoea [Recovered/Resolved]
  - Chest discomfort [Recovered/Resolved]
  - Pleurisy [Recovered/Resolved]
